FAERS Safety Report 5528507-4 (Version None)
Quarter: 2007Q4

REPORT INFORMATION
  Report Type: 
  Country: None (occurrence: None)
  Receive Date: 20071123
  Receipt Date: 20071101
  Transmission Date: 20080405
  Serious: Yes (Hospitalization, Other)
  Sender: FDA-Public Use
  Company Number: 013315

PATIENT
  Sex: Male

DRUGS (2)
  1. PRIALT [Suspect]
     Indication: DRUG USE FOR UNKNOWN INDICATION
     Dosage: INTRATHECAL
     Route: 037
     Dates: start: 20070501
  2. MORPHINE INTRATHECAL DRIP INFUSION [Concomitant]

REACTIONS (14)
  - ANTIPHOSPHOLIPID ANTIBODIES POSITIVE [None]
  - APHASIA [None]
  - ATAXIA [None]
  - AUTOIMMUNE DISORDER [None]
  - BALANCE DISORDER [None]
  - CEREBRAL ATROPHY [None]
  - CEREBRAL THROMBOSIS [None]
  - DEPRESSION [None]
  - DYSGRAPHIA [None]
  - DYSPHEMIA [None]
  - RENAL CELL CARCINOMA STAGE UNSPECIFIED [None]
  - SPEECH DISORDER [None]
  - TACHYPHRENIA [None]
  - THYROID DISORDER [None]
